FAERS Safety Report 5657898-9 (Version None)
Quarter: 2008Q1

REPORT INFORMATION
  Report Type: 
  Country: None (occurrence: None)
  Receive Date: 20080305
  Receipt Date: 20080222
  Transmission Date: 20080703
  Serious: Yes (Other)
  Sender: FDA-Public Use
  Company Number: TUK2008A00015

PATIENT
  Age: 65 Year
  Sex: Male

DRUGS (3)
  1. ACTOS [Suspect]
     Indication: DIABETES MELLITUS
     Dosage: 15 MG ORAL
     Route: 048
     Dates: start: 20060501, end: 20070901
  2. METFORMIN HCL [Concomitant]
  3. SIMVASTATIN [Concomitant]

REACTIONS (1)
  - JOINT SWELLING [None]
